FAERS Safety Report 5591933-1 (Version None)
Quarter: 2008Q1

REPORT INFORMATION
  Report Type: 
  Country: None (occurrence: None)
  Receive Date: 20080115
  Receipt Date: 20080107
  Transmission Date: 20080703
  Serious: Yes (Hospitalization)
  Sender: FDA-Public Use
  Company Number: IT-ELI_LILLY_AND_COMPANY-IT200801001497

PATIENT
  Sex: Female

DRUGS (2)
  1. FORTEO [Suspect]
     Indication: OSTEOPOROSIS
     Dosage: 20 UG, DAILY (1/D)
     Route: 058
     Dates: start: 20060405, end: 20070706
  2. FOSAMAX [Concomitant]
     Dosage: 70 MG, UNK
     Dates: end: 20060405

REACTIONS (2)
  - ANAEMIA [None]
  - ASTHENIA [None]
